FAERS Safety Report 8811600 (Version 2)
Quarter: 2012Q4

REPORT INFORMATION
  Report Type: 
  Country: US (occurrence: US)
  Receive Date: 20120927
  Receipt Date: 20121205
  Transmission Date: 20130627
  Serious: Yes (Other)
  Sender: FDA-Public Use
  Company Number: PHEH2012US018609

PATIENT
  Sex: Female

DRUGS (8)
  1. DIOVAN HCT [Suspect]
     Dosage: 1 DF (160/12.5 mg), QD
  2. DIOVAN HCT [Suspect]
     Dosage: 1 DF (320/12.5 mg), UNK
  3. METOPROLOL [Concomitant]
  4. INSULIN [Concomitant]
  5. LASIX [Concomitant]
     Dosage: 10 mg, UNK
  6. HUMALOG [Concomitant]
  7. LANTUS [Concomitant]
  8. ASPIRIN ^BAYER^ [Concomitant]
     Dosage: 81 mg, UNK

REACTIONS (3)
  - Diabetes mellitus [Unknown]
  - Asthma [Unknown]
  - Drug intolerance [Unknown]
